FAERS Safety Report 8615627-0 (Version None)
Quarter: 2012Q3

REPORT INFORMATION
  Report Type: 
  Country: None (occurrence: None)
  Receive Date: 20120823
  Receipt Date: 20120810
  Transmission Date: 20120928
  Serious: Yes (Other)
  Sender: FDA-Public Use
  Company Number: JP-ASTRAZENECA-2012SE60133

PATIENT
  Age: 78 Year
  Sex: Male

DRUGS (6)
  1. TRAZODONE HYDROCHLORIDE [Suspect]
     Route: 048
     Dates: start: 20120427, end: 20120430
  2. SEROQUEL [Suspect]
     Indication: DELIRIUM
     Route: 048
     Dates: start: 20120427, end: 20120430
  3. SEROQUEL [Suspect]
     Route: 048
     Dates: start: 20120501, end: 20120613
  4. SEROQUEL [Suspect]
     Route: 048
     Dates: start: 20120614, end: 20120627
  5. TRAZODONE HYDROCHLORIDE [Suspect]
     Route: 048
     Dates: start: 20120501, end: 20120613
  6. TRAZODONE HYDROCHLORIDE [Suspect]
     Route: 048
     Dates: start: 20120614, end: 20120627

REACTIONS (2)
  - OFF LABEL USE [None]
  - DRUG ERUPTION [None]
